FAERS Safety Report 12920912 (Version 1)
Quarter: 2016Q4

REPORT INFORMATION
  Report Type: Spontaneous
  Country: US (occurrence: US)
  Receive Date: 20161108
  Receipt Date: 20161108
  Transmission Date: 20170207
  Serious: Yes (Life-Threatening, Hospitalization, Other)
  Sender: FDA-Public Use
  Company Number: None

PATIENT
  Age: 71 Year
  Sex: Female
  Weight: 88.45 kg

DRUGS (12)
  1. NEURONTIN [Suspect]
     Active Substance: GABAPENTIN
     Indication: RUPTURED CEREBRAL ANEURYSM
     Dosage: NEURONTIN - 600 MG TABLETS - (2) 300 MG - TAKEN ORALLY 4 X DAILY
     Route: 048
     Dates: start: 200907, end: 201001
  2. LANTUS [Concomitant]
     Active Substance: INSULIN GLARGINE
  3. ANTIBIOTICS [Concomitant]
     Active Substance: UNSPECIFIED INGREDIENT
  4. NEURONTIN [Suspect]
     Active Substance: GABAPENTIN
     Indication: MYELITIS TRANSVERSE
     Dosage: NEURONTIN - 600 MG TABLETS - (2) 300 MG - TAKEN ORALLY 4 X DAILY
     Route: 048
     Dates: start: 200907, end: 201001
  5. STEROIDS [Concomitant]
     Active Substance: UNSPECIFIED INGREDIENT
  6. PLAVIX [Concomitant]
     Active Substance: CLOPIDOGREL BISULFATE
  7. VITAMIN D3 [Concomitant]
     Active Substance: CHOLECALCIFEROL
  8. VITAMIN B12 [Concomitant]
     Active Substance: CYANOCOBALAMIN
  9. TYLENOL [Concomitant]
     Active Substance: ACETAMINOPHEN
  10. VITAMIN A [Concomitant]
     Active Substance: VITAMIN A
  11. KEFLEX [Concomitant]
     Active Substance: CEPHALEXIN
  12. FUROSEMIDE. [Concomitant]
     Active Substance: FUROSEMIDE

REACTIONS (8)
  - Seizure [None]
  - Lymphatic disorder [None]
  - Dehydration [None]
  - Muscle atrophy [None]
  - Neuralgia [None]
  - Pain [None]
  - Pain in extremity [None]
  - Petit mal epilepsy [None]
